FAERS Safety Report 4843593-2 (Version None)
Quarter: 2005Q4

REPORT INFORMATION
  Report Type: 
  Country: None (occurrence: None)
  Receive Date: 20051202
  Receipt Date: 20020320
  Transmission Date: 20060501
  Serious: Yes (Death, Life-Threatening)
  Sender: FDA-Public Use
  Company Number: FR-AVENTIS-200211154FR

PATIENT
  Sex: Male

DRUGS (9)
  1. TAXOTERE [Suspect]
     Indication: LUNG NEOPLASM MALIGNANT
     Route: 042
     Dates: start: 20011129, end: 20020110
  2. TAXOTERE [Suspect]
     Route: 042
     Dates: start: 20020129, end: 20020212
  3. RADIOTHERAPY [Suspect]
     Indication: LUNG NEOPLASM MALIGNANT
     Dates: start: 20020129, end: 20020305
  4. AMIODARONE [Suspect]
     Indication: ARRHYTHMIA
     Route: 048
     Dates: start: 20011012, end: 20020305
  5. OXYGEN [Concomitant]
     Dates: start: 20020305
  6. TAVANIC [Concomitant]
     Indication: BRONCHITIS
     Dates: start: 20020211
  7. SOPROL [Concomitant]
     Dates: start: 20000101
  8. LASILIX [Concomitant]
     Dates: start: 20000101
  9. DIFFU K [Concomitant]
     Dates: start: 20000101

REACTIONS (6)
  - BRONCHITIS [None]
  - HYPOCAPNIA [None]
  - HYPOXIA [None]
  - PNEUMONITIS [None]
  - PNEUMOTHORAX [None]
  - PULMONARY FIBROSIS [None]
